FAERS Safety Report 7817101-8 (Version None)
Quarter: 2011Q4

REPORT INFORMATION
  Report Type: 
  Country: None (occurrence: None)
  Receive Date: 20111017
  Receipt Date: 20111013
  Transmission Date: 20120403
  Serious: Yes (Life-Threatening, Hospitalization, Other)
  Sender: FDA-Public Use
  Company Number: JP-PFIZER INC-2011208744

PATIENT
  Age: 74 Year
  Sex: Female
  Weight: 50 kg

DRUGS (9)
  1. EPLERENONE [Suspect]
     Indication: CARDIAC FAILURE
  2. FUROSEMIDE [Concomitant]
     Indication: DIABETES MELLITUS
     Dosage: 40 MG, 1X/DAY
     Route: 048
     Dates: start: 20051119
  3. FUROSEMIDE [Concomitant]
     Indication: CARDIAC FAILURE
  4. EPLERENONE [Suspect]
     Indication: ATRIAL FIBRILLATION
  5. DIGOXIN [Suspect]
     Indication: TACHYCARDIA
  6. EPLERENONE [Suspect]
     Indication: DIABETES MELLITUS
     Dosage: 50 MG, 1X/DAY
     Route: 048
     Dates: start: 20090831, end: 20101119
  7. EPLERENONE [Suspect]
     Indication: HYPERTENSION
  8. DIGOXIN [Suspect]
     Indication: ATRIAL FIBRILLATION
     Dosage: 0.25 MG, 1X/DAY
     Dates: start: 20100801, end: 20101119
  9. FUROSEMIDE [Concomitant]
     Indication: ATRIAL FIBRILLATION

REACTIONS (3)
  - TOXICITY TO VARIOUS AGENTS [None]
  - HYPERKALAEMIA [None]
  - VENTRICULAR TACHYCARDIA [None]
